FAERS Safety Report 7789943-9 (Version None)
Quarter: 2011Q3

REPORT INFORMATION
  Report Type: 
  Country: None (occurrence: None)
  Receive Date: 20110930
  Receipt Date: 20110328
  Transmission Date: 20111222
  Serious: No
  Sender: FDA-Public Use
  Company Number: US-ASTRAZENECA-2007UW23772

PATIENT
  Age: 64 Year
  Sex: Female
  Weight: 70.3 kg

DRUGS (2)
  1. ATENOLOL [Concomitant]
     Route: 048
  2. ARIMIDEX [Suspect]
     Indication: BREAST CANCER
     Route: 048
     Dates: start: 20060101, end: 20110201

REACTIONS (14)
  - HYPERTENSION [None]
  - HEADACHE [None]
  - WEIGHT DECREASED [None]
  - WRONG TECHNIQUE IN DRUG USAGE PROCESS [None]
  - AMNESIA [None]
  - INFLUENZA [None]
  - SKIN ATROPHY [None]
  - DENTAL CARIES [None]
  - PAIN [None]
  - NAUSEA [None]
  - FEELING HOT [None]
  - DRUG DOSE OMISSION [None]
  - FEELING COLD [None]
  - WEIGHT INCREASED [None]
